FAERS Safety Report 9474183 (Version 1)
Quarter: 2013Q3

REPORT INFORMATION
  Report Type: Spontaneous
  Country: UA (occurrence: None)
  Receive Date: 20130820
  Receipt Date: 20130820
  Transmission Date: 20140515
  Serious: Yes (Death)
  Sender: FDA-Public Use
  Company Number: 2013S1001654

PATIENT
  Age: 54 Year
  Sex: Male

DRUGS (4)
  1. LIVAZO (PITAVASTATIN) [Suspect]
     Indication: HYPERCHOLESTEROLAEMIA
     Route: 048
     Dates: start: 20130620, end: 20130731
  2. INSPRA [Concomitant]
  3. DIGOXIN [Concomitant]
  4. ASPIRIN W/ MAGNESIUM OXIDE [Concomitant]

REACTIONS (4)
  - Drug ineffective [None]
  - Cardiac failure [None]
  - Arteriosclerosis [None]
  - Cardiac failure acute [None]
